FAERS Safety Report 8755944 (Version 2)
Quarter: 2012Q4

REPORT INFORMATION
  Report Type: Spontaneous
  Country: US (occurrence: None)
  Receive Date: 20120814
  Receipt Date: 20120823
  Transmission Date: 20130627
  Serious: Yes (Other)
  Sender: FDA-Public Use
  Company Number: US-1193460

PATIENT
  Age: 61 Year
  Sex: Male
  Weight: 78.02 kg

DRUGS (4)
  1. PREDNISOLONE ACETATE [Suspect]
     Indication: POSTOPERATIVE CARE
     Route: 047
     Dates: start: 20120709, end: 20120724
  2. ACULAR [Concomitant]
  3. RELAFEN [Concomitant]
  4. VICODIN [Concomitant]

REACTIONS (5)
  - Corneal opacity [None]
  - Vision blurred [None]
  - Visual acuity reduced [None]
  - Eye pain [None]
  - Photophobia [None]
